FAERS Safety Report 6355414-X (Version None)
Quarter: 2009Q3

REPORT INFORMATION
  Report Type: 
  Country: None (occurrence: None)
  Receive Date: 20090914
  Receipt Date: 20090902
  Transmission Date: 20100115
  Serious: Yes (Hospitalization, Other)
  Sender: FDA-Public Use
  Company Number: CH-PFIZER INC-2009192954

PATIENT

DRUGS (2)
  1. LYRICA [Suspect]
     Dosage: UNK
  2. TEMESTA [Concomitant]
     Dosage: 1 MG TO 2 MG PER DAY

REACTIONS (2)
  - DRUG DEPENDENCE [None]
  - MENINGIOMA [None]
